FAERS Safety Report 8007620-6 (Version None)
Quarter: 2011Q4

REPORT INFORMATION
  Report Type: 
  Country: None (occurrence: None)
  Receive Date: 20111222
  Receipt Date: 20111222
  Transmission Date: 20120403
  Serious: Yes (Other)
  Sender: FDA-Public Use
  Company Number: None

PATIENT
  Age: 82 Year
  Sex: Female
  Weight: 52.6173 kg

DRUGS (1)
  1. ALPHAGAN [Suspect]

REACTIONS (17)
  - DISORIENTATION [None]
  - GASTRIC DISORDER [None]
  - IMPAIRED DRIVING ABILITY [None]
  - ABDOMINAL PAIN UPPER [None]
  - CONFUSIONAL STATE [None]
  - INFECTION [None]
  - IMMUNE SYSTEM DISORDER [None]
  - GAIT DISTURBANCE [None]
  - COUGH [None]
  - DYSACUSIS [None]
  - SENSATION OF FOREIGN BODY [None]
  - MALAISE [None]
  - LOSS OF CONSCIOUSNESS [None]
  - DIZZINESS [None]
  - HEADACHE [None]
  - GASTROINTESTINAL DISORDER [None]
  - INFLUENZA LIKE ILLNESS [None]
